FAERS Safety Report 25763113 (Version 1)
Quarter: 2025Q3

REPORT INFORMATION
  Report Type: Spontaneous
  Country: US (occurrence: US)
  Receive Date: 20250904
  Receipt Date: 20250904
  Transmission Date: 20251021
  Serious: Yes (Other)
  Sender: ABBVIE
  Company Number: US-ABBVIE-6445944

PATIENT

DRUGS (1)
  1. RINVOQ [Suspect]
     Active Substance: UPADACITINIB
     Indication: Crohn^s disease
     Route: 048
     Dates: start: 202504

REACTIONS (5)
  - Pancreatic carcinoma [Unknown]
  - Frequent bowel movements [Unknown]
  - Dyschezia [Unknown]
  - Faeces discoloured [Unknown]
  - Jaundice [Unknown]

NARRATIVE: CASE EVENT DATE: 20250101
